APPROVED DRUG PRODUCT: SINGULAIR
Active Ingredient: MONTELUKAST SODIUM
Strength: EQ 4MG BASE/PACKET
Dosage Form/Route: GRANULE;ORAL
Application: N021409 | Product #001 | TE Code: AB
Applicant: ORGANON LLC A SUB OF ORGANON AND CO
Approved: Jul 26, 2002 | RLD: Yes | RS: Yes | Type: RX